FAERS Safety Report 12861230 (Version 2)
Quarter: 2016Q4

REPORT INFORMATION
  Report Type: Report from Study
  Country: US (occurrence: US)
  Receive Date: 20161019
  Receipt Date: 20161124
  Transmission Date: 20170207
  Serious: No
  Sender: FDA-Public Use
  Company Number: PHEH2016US026685

PATIENT
  Sex: Female

DRUGS (4)
  1. EXTAVIA [Suspect]
     Active Substance: INTERFERON BETA-1B
     Dosage: 1 ML, QOD (0.25 MG) (WEEK 7+)
     Route: 058
  2. EXTAVIA [Suspect]
     Active Substance: INTERFERON BETA-1B
     Dosage: 0.75 ML, QOD (0.1875 MG) (WEEK 5 TO 6)
     Route: 058
  3. EXTAVIA [Suspect]
     Active Substance: INTERFERON BETA-1B
     Dosage: 0.5 ML, QOD (0.125 MG) (WEEK 3 TO 4)
     Route: 058
  4. EXTAVIA [Suspect]
     Active Substance: INTERFERON BETA-1B
     Indication: MULTIPLE SCLEROSIS
     Dosage: 0.25 ML, QOD (0.0625 MG) (WEEK 1 TO 2)
     Route: 058
     Dates: start: 20161011

REACTIONS (1)
  - Injection site extravasation [Unknown]
